FAERS Safety Report 8016397-X (Version None)
Quarter: 2011Q4

REPORT INFORMATION
  Report Type: 
  Country: None (occurrence: None)
  Receive Date: 20111230
  Receipt Date: 20111220
  Transmission Date: 20120403
  Serious: Yes (Hospitalization)
  Sender: FDA-Public Use
  Company Number: ES-SANOFI-AVENTIS-2011SA082048

PATIENT
  Age: 75 Year
  Sex: Female

DRUGS (5)
  1. METFORMIN HCL [Concomitant]
     Indication: DIABETES MELLITUS
     Dosage: DOSE:2 UNIT(S)
     Route: 065
  2. MULTAQ [Suspect]
     Indication: ARRHYTHMIA
     Route: 048
     Dates: start: 20111101, end: 20111214
  3. HALOPERIDOL [Concomitant]
     Dosage: DOSE:2 UNIT(S)
     Route: 065
  4. MASDIL [Concomitant]
  5. SINTROM [Suspect]
     Dosage: ALTERNATE EACH DAY: 1/2 TABLET (ONE DAY) AND 3/4 TABLET (THE NEXT DAY)
     Dates: start: 20111101

REACTIONS (3)
  - FAECES DISCOLOURED [None]
  - DYSGEUSIA [None]
  - EPISTAXIS [None]
